FAERS Safety Report 19644542 (Version 1)
Quarter: 2021Q3

REPORT INFORMATION
  Report Type: Spontaneous
  Country: CN (occurrence: CN)
  Receive Date: 20210802
  Receipt Date: 20210802
  Transmission Date: 20211014
  Serious: Yes (Other)
  Sender: FDA-Public Use
  Company Number: CN-ROCHE-2880511

PATIENT
  Age: 66 Year
  Sex: Male

DRUGS (13)
  1. TECENTRIQ [Suspect]
     Active Substance: ATEZOLIZUMAB
     Route: 065
     Dates: start: 20200819
  2. TECENTRIQ [Suspect]
     Active Substance: ATEZOLIZUMAB
     Route: 065
     Dates: start: 20200317
  3. ETOPOSIDE. [Concomitant]
     Active Substance: ETOPOSIDE
     Dosage: DAY1?3
     Route: 041
     Dates: start: 20200819
  4. ETOPOSIDE. [Concomitant]
     Active Substance: ETOPOSIDE
     Route: 048
     Dates: start: 20200317
  5. TECENTRIQ [Suspect]
     Active Substance: ATEZOLIZUMAB
     Dosage: SUBSEQUENT DOSE RECEIVED ON 15/OCT/2020, 14/NOV/2020, 13/DEC/2020
     Route: 065
     Dates: start: 20200916
  6. TECENTRIQ [Suspect]
     Active Substance: ATEZOLIZUMAB
     Route: 065
     Dates: start: 20200128
  7. TECENTRIQ [Suspect]
     Active Substance: ATEZOLIZUMAB
     Indication: SMALL CELL LUNG CANCER
     Route: 065
     Dates: start: 20200726
  8. CARBOPLATIN. [Concomitant]
     Active Substance: CARBOPLATIN
     Dosage: DAY1
     Route: 041
     Dates: start: 20200819
  9. ETOPOSIDE. [Concomitant]
     Active Substance: ETOPOSIDE
     Route: 048
     Dates: start: 20200128
  10. CARBOPLATIN. [Concomitant]
     Active Substance: CARBOPLATIN
     Dosage: SUBSEQUENT DOSE RECEIVED ON 15/OCT/2020, 14/NOV/2020, 13/DEC/2020 DAY2
     Route: 041
     Dates: start: 20200916
  11. ETOPOSIDE. [Concomitant]
     Active Substance: ETOPOSIDE
     Dosage: SUBSEQUENT DOSE RECEIVED ON 15/OCT/2020, 14/NOV/2020, 13/DEC/2020 DAY 2?4
     Route: 041
     Dates: start: 20200916
  12. CARBOPLATIN. [Concomitant]
     Active Substance: CARBOPLATIN
     Indication: SMALL CELL LUNG CANCER
     Dosage: DAY1
     Route: 041
     Dates: start: 20200726
  13. ETOPOSIDE. [Concomitant]
     Active Substance: ETOPOSIDE
     Indication: SMALL CELL LUNG CANCER
     Dosage: DAY1?3
     Route: 041
     Dates: start: 20200726

REACTIONS (1)
  - Myelosuppression [Unknown]
